FAERS Safety Report 10284012 (Version 1)
Quarter: 2014Q3

REPORT INFORMATION
  Report Type: Spontaneous
  Country: US (occurrence: None)
  Receive Date: 20140703
  Receipt Date: 20140703
  Transmission Date: 20150326
  Serious: Yes (Hospitalization)
  Sender: FDA-Public Use
  Company Number: None

PATIENT
  Age: 65 Year
  Sex: Female
  Weight: 82.8 kg

DRUGS (10)
  1. LEVOTHYROXINE(SYNTHROID, LEVOTHROID) [Concomitant]
  2. QUETIAPINE(SEROQUEL) [Concomitant]
  3. HYOACYAMINE SULFATE [Concomitant]
  4. POTASSIUM CHLORIDE. [Concomitant]
     Active Substance: POTASSIUM CHLORIDE
  5. LEVOTHYROXINE [Concomitant]
     Active Substance: LEVOTHYROXINE
  6. ESCITALOPRAM(LEXAPRO) [Concomitant]
  7. PANTOPRAZOLE(PROTONIX) [Concomitant]
  8. RIBAVIRIN. [Suspect]
     Active Substance: RIBAVIRIN
     Indication: HEPATITIS C
     Route: 048
     Dates: start: 20140224
  9. SOFOSBUVIR [Suspect]
     Active Substance: SOFOSBUVIR
     Indication: HEPATITIS C
     Route: 048
     Dates: start: 20140224
  10. RIFAXIMIN(XIFAXAN) [Concomitant]

REACTIONS (5)
  - Nausea [None]
  - Vomiting [None]
  - Chills [None]
  - Pyrexia [None]
  - Abdominal pain [None]

NARRATIVE: CASE EVENT DATE: 20140625
